FAERS Safety Report 19195283 (Version 1)
Quarter: 2021Q2

REPORT INFORMATION
  Report Type: Spontaneous
  Country: US (occurrence: US)
  Receive Date: 20210429
  Receipt Date: 20210429
  Transmission Date: 20210717
  Serious: No
  Sender: FDA-Public Use
  Company Number: None

PATIENT
  Age: 53 Year
  Sex: Female

DRUGS (1)
  1. RIFAMPIN. [Suspect]
     Active Substance: RIFAMPIN
     Indication: LUNG DISORDER

REACTIONS (4)
  - Oral blood blister [None]
  - Nausea [None]
  - Blood blister [None]
  - Hypersensitivity [None]

NARRATIVE: CASE EVENT DATE: 20181001
